FAERS Safety Report 4824124-X (Version None)
Quarter: 2005Q4

REPORT INFORMATION
  Report Type: 
  Country: None (occurrence: None)
  Receive Date: 20051108
  Receipt Date: 20051024
  Transmission Date: 20060501
  Serious: Yes (Hospitalization)
  Sender: FDA-Public Use
  Company Number: USA0510111631

PATIENT
  Sex: Female

DRUGS (1)
  1. PROZAC [Suspect]
     Indication: OBSESSIVE-COMPULSIVE DISORDER
     Dosage: 120 MG DAY
     Dates: start: 20050901, end: 20051001

REACTIONS (10)
  - ABNORMAL BEHAVIOUR [None]
  - ACCIDENTAL OVERDOSE [None]
  - ALCOHOL USE [None]
  - DISTURBANCE IN ATTENTION [None]
  - DRUG DISPENSING ERROR [None]
  - INCORRECT DOSE ADMINISTERED [None]
  - INDIFFERENCE [None]
  - MENTAL IMPAIRMENT [None]
  - SOMNOLENCE [None]
  - THINKING ABNORMAL [None]
